FAERS Safety Report 9767422 (Version 1)
Quarter: 2013Q4

REPORT INFORMATION
  Report Type: Spontaneous
  Country: TR (occurrence: TR)
  Receive Date: 20131217
  Receipt Date: 20131217
  Transmission Date: 20140711
  Serious: Yes (Hospitalization, Other)
  Sender: FDA-Public Use
  Company Number: TR-ROXANE LABORATORIES, INC.-2013-RO-01953RO

PATIENT
  Age: 78 Year
  Sex: Female

DRUGS (3)
  1. LITHIUM CARBONATE [Suspect]
     Indication: BIPOLAR DISORDER
  2. OLANZAPINE [Concomitant]
     Indication: BIPOLAR DISORDER
  3. SERTRALINE [Concomitant]
     Indication: BIPOLAR DISORDER

REACTIONS (4)
  - Neurotoxicity [Recovered/Resolved]
  - Hypophagia [Unknown]
  - Dehydration [Unknown]
  - Prerenal failure [Unknown]
